FAERS Safety Report 13272187 (Version 1)
Quarter: 2017Q1

REPORT INFORMATION
  Report Type: Spontaneous
  Country: US (occurrence: US)
  Receive Date: 20170224
  Receipt Date: 20170224
  Transmission Date: 20170428
  Serious: Yes (Disabling)
  Sender: FDA-Public Use
  Company Number: None

PATIENT
  Age: 48 Year
  Sex: Female

DRUGS (1)
  1. BECONASE AQ [Suspect]
     Active Substance: BECLOMETHASONE DIPROPIONATE MONOHYDRATE
     Indication: VIRAL UPPER RESPIRATORY TRACT INFECTION
     Dosage: ?          OTHER STRENGTH:MICROGRAMS;QUANTITY:1 SPRAY(S);?
     Route: 055
     Dates: start: 20170216, end: 20170224

REACTIONS (2)
  - Neuralgia [None]
  - Toothache [None]

NARRATIVE: CASE EVENT DATE: 20170218
